FAERS Safety Report 7102586-5 (Version None)
Quarter: 2010Q4

REPORT INFORMATION
  Report Type: 
  Country: None (occurrence: None)
  Receive Date: 20101115
  Receipt Date: 20101108
  Transmission Date: 20110411
  Serious: Yes (Congenital Anomaly)
  Sender: FDA-Public Use
  Company Number: A0847395A

PATIENT
  Sex: Male

DRUGS (2)
  1. PAXIL [Suspect]
     Indication: PRODUCT USED FOR UNKNOWN INDICATION
  2. PRENATAL VITAMINS [Concomitant]

REACTIONS (5)
  - CONGENITAL CARDIOVASCULAR ANOMALY [None]
  - DRUG EXPOSURE DURING PREGNANCY [None]
  - MATERNAL DRUGS AFFECTING FOETUS [None]
  - PULMONARY ARTERY ATRESIA [None]
  - PULMONARY ARTERY STENOSIS CONGENITAL [None]
